FAERS Safety Report 11083718 (Version 2)
Quarter: 2015Q2

REPORT INFORMATION
  Report Type: Other
  Country: IT (occurrence: IT)
  Receive Date: 20150501
  Receipt Date: 20150527
  Transmission Date: 20150821
  Serious: Yes (Hospitalization, Other)
  Sender: FDA-Public Use
  Company Number: IT-MYLANLABS-2015M1013237

PATIENT

DRUGS (6)
  1. SERENASE                           /00027401/ [Suspect]
     Active Substance: HALOPERIDOL
     Indication: PRODUCT USED FOR UNKNOWN INDICATION
     Dosage: 10 ML, TOTAL
     Route: 048
     Dates: start: 20150312
  2. HALDOL [Suspect]
     Active Substance: HALOPERIDOL
     Indication: PRODUCT USED FOR UNKNOWN INDICATION
     Dosage: 30 ML, TOTAL
     Route: 048
     Dates: start: 20150312
  3. VENLAFAXINE HYDROCHLORIDE. [Suspect]
     Active Substance: VENLAFAXINE HYDROCHLORIDE
     Indication: PRODUCT USED FOR UNKNOWN INDICATION
     Dosage: 4.5 G, TOTAL
     Route: 048
     Dates: start: 20150312
  4. DEPAKIN CHRONO                     /01294701/ [Suspect]
     Active Substance: VALPROIC ACID
     Indication: PRODUCT USED FOR UNKNOWN INDICATION
     Dosage: 3 G, TOTAL
     Route: 048
     Dates: start: 20150312
  5. TAVOR [Suspect]
     Active Substance: LORAZEPAM
     Indication: PRODUCT USED FOR UNKNOWN INDICATION
     Dosage: 8 MG, TOTAL
     Route: 048
     Dates: start: 20150312
  6. AUGMENTIN [Suspect]
     Active Substance: AMOXICILLIN\CLAVULANATE POTASSIUM
     Indication: PRODUCT USED FOR UNKNOWN INDICATION
     Dosage: 6 G, TOTAL
     Route: 048
     Dates: start: 20150312

REACTIONS (3)
  - Drug abuse [Unknown]
  - Overdose [Unknown]
  - Self injurious behaviour [Recovered/Resolved]

NARRATIVE: CASE EVENT DATE: 20150312
